FAERS Safety Report 25961674 (Version 4)
Quarter: 2025Q4

REPORT INFORMATION
  Report Type: Report from Study
  Country: ZA (occurrence: ZA)
  Receive Date: 20251027
  Receipt Date: 20251210
  Transmission Date: 20260117
  Serious: Yes (Hospitalization)
  Sender: SANOFI AVENTIS
  Company Number: ZA-SA-2025SA300135

PATIENT
  Age: 51 Year
  Sex: Female

DRUGS (2)
  1. INSULIN GLARGINE [Suspect]
     Active Substance: INSULIN GLARGINE
     Indication: Type 2 diabetes mellitus
     Dosage: 28 IU, HS
     Route: 058
     Dates: start: 20250701, end: 2025
  2. INSULIN GLARGINE [Suspect]
     Active Substance: INSULIN GLARGINE
     Dosage: 28/16 UNITS, BID
     Route: 058
     Dates: start: 2025

REACTIONS (12)
  - Chest pain [Recovering/Resolving]
  - Muscle spasms [Not Recovered/Not Resolved]
  - Blood glucose increased [Recovering/Resolving]
  - Hypoglycaemia [Recovering/Resolving]
  - Malaise [Recovered/Resolved]
  - Glycosylated haemoglobin increased [Recovering/Resolving]
  - Paraesthesia [Recovering/Resolving]
  - Urinary incontinence [Recovering/Resolving]
  - Emotional distress [Recovering/Resolving]
  - Nervousness [Recovered/Resolved]
  - Dizziness [Recovered/Resolved]
  - Off label use [Unknown]

NARRATIVE: CASE EVENT DATE: 20250101
